FAERS Safety Report 18234702 (Version 6)
Quarter: 2020Q4

REPORT INFORMATION
  Report Type: Spontaneous
  Country: CA (occurrence: CA)
  Receive Date: 20200904
  Receipt Date: 20201208
  Transmission Date: 20210113
  Serious: Yes (Hospitalization, Other)
  Sender: FDA-Public Use
  Company Number: CA-CELLTRION INC.-2020CA024858

PATIENT

DRUGS (5)
  1. METHOTREXATE. [Concomitant]
     Active Substance: METHOTREXATE
     Dosage: UNK
     Route: 065
  2. INFLECTRA [Suspect]
     Active Substance: INFLIXIMAB-DYYB
     Indication: CROHN^S DISEASE
     Dosage: 600 MG WEEKS 2, 6, THEN EVERY 8 WEEKS
     Route: 042
     Dates: start: 20200724, end: 20200805
  3. INFLECTRA [Suspect]
     Active Substance: INFLIXIMAB-DYYB
     Dosage: 600 MG WEEKS 2, 6, THEN EVERY 8 WEEKS
     Route: 042
     Dates: start: 20200805, end: 20200901
  4. INFLECTRA [Suspect]
     Active Substance: INFLIXIMAB-DYYB
     Dosage: 400 MG 6 WEEKS, THEN EVERY 8 WEEKS
     Route: 042
     Dates: start: 20200910
  5. INFLECTRA [Suspect]
     Active Substance: INFLIXIMAB-DYYB
     Dosage: 400 MG 6 WEEKS, THEN EVERY 8 WEEKS
     Route: 042
     Dates: start: 20201105

REACTIONS (8)
  - Off label use [Unknown]
  - Intentional product use issue [Unknown]
  - Mental disorder [Unknown]
  - Arthralgia [Unknown]
  - Off label use [Unknown]
  - Blood pressure decreased [Unknown]
  - Intestinal obstruction [Recovered/Resolved]
  - Weight increased [Not Recovered/Not Resolved]

NARRATIVE: CASE EVENT DATE: 2020
